FAERS Safety Report 6632412-X (Version None)
Quarter: 2010Q1

REPORT INFORMATION
  Report Type: 
  Country: None (occurrence: None)
  Receive Date: 20100312
  Receipt Date: 20100121
  Transmission Date: 20100710
  Serious: Yes (Hospitalization)
  Sender: FDA-Public Use
  Company Number: 2005BI020605

PATIENT
  Age: 53 Year
  Sex: Female
  Weight: 66 kg

DRUGS (5)
  1. AVONEX [Suspect]
     Indication: MULTIPLE SCLEROSIS
     Route: 030
     Dates: start: 19980501, end: 20030801
  2. AVONEX [Suspect]
     Route: 030
     Dates: start: 20030801, end: 20090101
  3. AVONEX [Suspect]
     Route: 030
     Dates: start: 20090101, end: 20100109
  4. AVONEX [Suspect]
     Route: 030
     Dates: start: 20100109, end: 20100116
  5. AVONEX [Suspect]
     Route: 030
     Dates: start: 20100116, end: 20100116

REACTIONS (9)
  - ASTHENIA [None]
  - DISORIENTATION [None]
  - ERYTHEMA [None]
  - GAIT DISTURBANCE [None]
  - MULTIPLE SCLEROSIS RELAPSE [None]
  - MUSCLE SPASMS [None]
  - MUSCULAR WEAKNESS [None]
  - PYREXIA [None]
  - RASH [None]
